FAERS Safety Report 6016378-1 (Version None)
Quarter: 2008Q4

REPORT INFORMATION
  Report Type: 
  Country: None (occurrence: None)
  Receive Date: 20081217
  Receipt Date: 20081030
  Transmission Date: 20090506
  Serious: Yes (Hospitalization, Other)
  Sender: FDA-Public Use
  Company Number: US-WYE-H06626808

PATIENT
  Age: 63 Year
  Sex: Female
  Weight: 90.8 kg

DRUGS (8)
  1. TORISEL [Suspect]
     Indication: RENAL CELL CARCINOMA
     Dosage: 25 MG 1X PER 1 WK, INTRAVENOUS ; 25 MG 1X PER 1 WK, INTRAVENOUS
     Route: 042
     Dates: start: 20081024, end: 20081024
  2. TORISEL [Suspect]
     Indication: RENAL CELL CARCINOMA
     Dosage: 25 MG 1X PER 1 WK, INTRAVENOUS ; 25 MG 1X PER 1 WK, INTRAVENOUS
     Route: 042
     Dates: start: 20080101
  3. BENICAR [Concomitant]
  4. PROTONIX [Concomitant]
  5. KEPPRA [Concomitant]
  6. DECADRON [Concomitant]
  7. SYNTHROID [Concomitant]
  8. INSULIN (INSULIN) [Concomitant]

REACTIONS (1)
  - CEREBRAL HAEMORRHAGE [None]
